FAERS Safety Report 10048174 (Version 1)
Quarter: 2014Q1

REPORT INFORMATION
  Report Type: Spontaneous
  Country: ES (occurrence: ES)
  Receive Date: 20140331
  Receipt Date: 20140331
  Transmission Date: 20141002
  Serious: Yes (Other)
  Sender: FDA-Public Use
  Company Number: ES-GLAXOSMITHKLINE-B0970307A

PATIENT
  Age: 47 Year
  Sex: Female

DRUGS (1)
  1. BENLYSTA [Suspect]
     Indication: SYSTEMIC LUPUS ERYTHEMATOSUS
     Route: 065
     Dates: start: 20131128, end: 20131227

REACTIONS (3)
  - Disability [Recovered/Resolved]
  - Arthralgia [Recovered/Resolved]
  - Malaise [Recovered/Resolved]
